FAERS Safety Report 17799335 (Version 2)
Quarter: 2020Q3

REPORT INFORMATION
  Report Type: Report from Study
  Country: IN (occurrence: IN)
  Receive Date: 20200518
  Receipt Date: 20200713
  Transmission Date: 20201105
  Serious: Yes (Other)
  Sender: FDA-Public Use
  Company Number: NVSC2020IN047201

PATIENT
  Age: 25 Year
  Sex: Male
  Weight: 78 kg

DRUGS (3)
  1. METFORMIN HYDROCHLORIDE. [Concomitant]
     Active Substance: METFORMIN HYDROCHLORIDE
     Indication: DIABETES MELLITUS
     Dosage: 1 DF
     Route: 048
  2. PANTOCID [Concomitant]
     Indication: DIABETES MELLITUS
     Dosage: 1 DF (PRE MEAL SINCE 2 MONTHS)
     Route: 048
  3. GALVUS [Suspect]
     Active Substance: VILDAGLIPTIN
     Indication: DIABETES MELLITUS
     Dosage: 1 DF, BID
     Route: 048

REACTIONS (7)
  - Weight decreased [Unknown]
  - Hyperglycaemia [Unknown]
  - Lipids increased [Unknown]
  - Overweight [Unknown]
  - Obesity [Unknown]
  - Flatulence [Unknown]
  - Dyspepsia [Unknown]

NARRATIVE: CASE EVENT DATE: 20200215
